FAERS Safety Report 12646869 (Version 1)
Quarter: 2016Q3

REPORT INFORMATION
  Report Type: Spontaneous
  Country: US (occurrence: US)
  Receive Date: 20160812
  Receipt Date: 20160812
  Transmission Date: 20161109
  Serious: Yes (Death)
  Sender: FDA-Public Use
  Company Number: US-ROCHE-1812561

PATIENT
  Sex: Male
  Weight: 68.55 kg

DRUGS (1)
  1. AVASTIN [Suspect]
     Active Substance: BEVACIZUMAB
     Indication: COLON CANCER
     Dosage: 400MG/16ML IV INFUSE 362MG EVERY 2 WEEKS
     Route: 042
     Dates: start: 20150805

REACTIONS (1)
  - Death [Fatal]
